FAERS Safety Report 9435851 (Version 1)
Quarter: 2013Q3

REPORT INFORMATION
  Report Type: Spontaneous
  Country: US (occurrence: None)
  Receive Date: 20130801
  Receipt Date: 20130801
  Transmission Date: 20140515
  Serious: Yes (Other)
  Sender: FDA-Public Use
  Company Number: None

PATIENT
  Sex: Male
  Weight: 45.36 kg

DRUGS (1)
  1. HYDROCORTISONE [Suspect]

REACTIONS (2)
  - Pre-existing disease [None]
  - Condition aggravated [None]
